FAERS Safety Report 11271647 (Version 3)
Quarter: 2015Q3

REPORT INFORMATION
  Report Type: Spontaneous
  Country: BG (occurrence: BG)
  Receive Date: 20150715
  Receipt Date: 20150731
  Transmission Date: 20151125
  Serious: Yes (Other)
  Sender: FDA-Public Use
  Company Number: BG-ROCHE-1607515

PATIENT
  Sex: Female

DRUGS (5)
  1. LUCENTIS [Suspect]
     Active Substance: RANIBIZUMAB
     Dosage: PRE FILLED SYRINGE (LEFT EYE)
     Route: 031
     Dates: start: 20150624
  2. LUCENTIS [Suspect]
     Active Substance: RANIBIZUMAB
     Indication: PRODUCT USED FOR UNKNOWN INDICATION
     Dosage: PRE FILLED SYRINGE
     Route: 031
     Dates: start: 2012
  3. LUCENTIS [Suspect]
     Active Substance: RANIBIZUMAB
     Dosage: PRE FILLED SYRINGE
     Route: 031
     Dates: start: 201505
  4. LUCENTIS [Suspect]
     Active Substance: RANIBIZUMAB
     Dosage: PRE FILLED SYRINGE (RIGHT EYE)
     Route: 031
     Dates: start: 20150701
  5. LUCENTIS [Suspect]
     Active Substance: RANIBIZUMAB
     Dosage: PRE FILLED SYRINGE
     Route: 031
     Dates: start: 201507

REACTIONS (3)
  - Headache [Recovered/Resolved]
  - Blindness transient [Recovered/Resolved]
  - Hypertension [Recovered/Resolved]

NARRATIVE: CASE EVENT DATE: 20150624
